FAERS Safety Report 14981402 (Version 4)
Quarter: 2019Q1

REPORT INFORMATION
  Report Type: Spontaneous
  Country: JP (occurrence: JP)
  Receive Date: 20180606
  Receipt Date: 20190106
  Transmission Date: 20190417
  Serious: Yes (Other)
  Sender: FDA-Public Use
  Company Number: JP-BEH-2018091246

PATIENT
  Age: 56 Year
  Sex: Female
  Weight: 50.6 kg

DRUGS (7)
  1. ALBUMINAR-25 [Suspect]
     Active Substance: ALBUMIN HUMAN
     Indication: FLUID REPLACEMENT
     Dosage: 250 ML, UNK
     Route: 042
     Dates: start: 20170616, end: 20170616
  2. METHYLPREDNISOLONE. [Concomitant]
     Active Substance: METHYLPREDNISOLONE
     Indication: IMMUNE TOLERANCE INDUCTION
     Route: 065
  3. ALBUMINAR-25 [Suspect]
     Active Substance: ALBUMIN HUMAN
     Indication: BLOOD OSMOLARITY
     Dosage: 100 UNK, UNK
     Route: 042
     Dates: start: 20170621, end: 20170621
  4. TACROLIMUS. [Concomitant]
     Active Substance: TACROLIMUS
     Indication: IMMUNE TOLERANCE INDUCTION
     Route: 065
  5. MYCOPHENOLATE MOFETIL ACCORD [Concomitant]
     Active Substance: MYCOPHENOLATE MOFETIL
     Indication: IMMUNE TOLERANCE INDUCTION
     Route: 065
  6. HEPARIN [Concomitant]
     Active Substance: HEPARIN SODIUM
     Indication: ANTICOAGULANT THERAPY
     Route: 065
  7. ALBUMINAR-5 [Concomitant]
     Active Substance: ALBUMIN HUMAN
     Indication: FLUID REPLACEMENT
     Route: 065

REACTIONS (8)
  - Urticaria [Recovered/Resolved]
  - Generalised erythema [Recovered/Resolved]
  - Oropharyngeal discomfort [Recovered/Resolved]
  - Flushing [Recovered/Resolved]
  - Pruritus [Recovered/Resolved]
  - Anaphylactic reaction [Recovered/Resolved]
  - Rash [Recovered/Resolved]
  - Eczema [Recovered/Resolved]

NARRATIVE: CASE EVENT DATE: 20170616
